FAERS Safety Report 7608687-7 (Version None)
Quarter: 2011Q3

REPORT INFORMATION
  Report Type: 
  Country: None (occurrence: None)
  Receive Date: 20110713
  Receipt Date: 20110713
  Transmission Date: 20111222
  Serious: Yes (Other)
  Sender: FDA-Public Use
  Company Number: None

PATIENT
  Age: 19 Year
  Sex: Female
  Weight: 63.5036 kg

DRUGS (2)
  1. HEADACHE RELIEF 250MG ACET, 250MG DG ASA, 85MG CAFFEI HEALTHY [Suspect]
     Indication: HEADACHE
     Dosage: TWO TABS ONCE PO
     Route: 048
     Dates: start: 20110711, end: 20110711
  2. HEADACHE RELIEF 250MG ACET, 250MG DG ASA, 85MG CAFFEI HEALTHY [Suspect]
     Indication: HEADACHE
     Dosage: TWO TABS ONCE PO
     Route: 048
     Dates: start: 20110624, end: 20110624

REACTIONS (1)
  - URTICARIA [None]
